FAERS Safety Report 5129066-0 (Version None)
Quarter: 2006Q4

REPORT INFORMATION
  Report Type: 
  Country: None (occurrence: None)
  Receive Date: 20061011
  Receipt Date: 20060926
  Transmission Date: 20070319
  Serious: Yes (Other)
  Sender: FDA-Public Use
  Company Number: OMPQ-PR-0609S-1400

PATIENT
  Age: 71 Year
  Sex: Male

DRUGS (1)
  1. OMNIPAQUE 140 [Suspect]
     Indication: PAIN MANAGEMENT
     Dosage: , SINGLE DOSE, EPIDURAL
     Route: 008
     Dates: start: 20060808, end: 20060808

REACTIONS (2)
  - INJECTION SITE INFECTION [None]
  - STAPHYLOCOCCAL INFECTION [None]
